FAERS Safety Report 25908601 (Version 1)
Quarter: 2025Q4

REPORT INFORMATION
  Report Type: Spontaneous
  Country: RU (occurrence: RU)
  Receive Date: 20251010
  Receipt Date: 20251010
  Transmission Date: 20260119
  Serious: Yes (Other)
  Sender: ELI LILLY AND COMPANY
  Company Number: RU-Merck Healthcare KGaA-2025050329

PATIENT
  Age: 36 Year
  Sex: Female

DRUGS (1)
  1. ERBITUX [Suspect]
     Active Substance: CETUXIMAB
     Indication: Squamous cell carcinoma of skin
     Dosage: UNK UNK, UNKNOWN
     Route: 065

REACTIONS (6)
  - Dysphagia [Unknown]
  - Skin wound [Unknown]
  - Clostridium difficile colitis [Unknown]
  - Wound infection [Unknown]
  - Skin toxicity [Unknown]
  - Off label use [Unknown]
